FAERS Safety Report 4730016-7 (Version None)
Quarter: 2005Q3

REPORT INFORMATION
  Report Type: 
  Country: None (occurrence: None)
  Receive Date: 20050801
  Receipt Date: 20050615
  Transmission Date: 20060218
  Serious: Yes (Other)
  Sender: FDA-Public Use
  Company Number: FRWYE747215JUN05

PATIENT
  Age: 41 Year
  Sex: Male
  Weight: 100 kg

DRUGS (5)
  1. ENBREL [Suspect]
     Indication: ANKYLOSING SPONDYLITIS
     Dosage: UNKNOWN
     Route: 058
     Dates: start: 20040101
  2. METHOTREXATE [Concomitant]
  3. KETOPROFEN [Concomitant]
  4. FOLIC ACID [Concomitant]
  5. LANSOPRAZOLE [Concomitant]

REACTIONS (9)
  - BLOOD ALBUMIN DECREASED [None]
  - C-REACTIVE PROTEIN INCREASED [None]
  - COLD AGGLUTININS POSITIVE [None]
  - COOMBS POSITIVE HAEMOLYTIC ANAEMIA [None]
  - DRUG EFFECT DECREASED [None]
  - HYPERGAMMAGLOBULINAEMIA [None]
  - INFLAMMATION [None]
  - MULTIPLE MYELOMA [None]
  - PROTEIN TOTAL INCREASED [None]
